FAERS Safety Report 16154885 (Version 1)
Quarter: 2019Q2

REPORT INFORMATION
  Report Type: Spontaneous
  Country: IT (occurrence: IT)
  Receive Date: 20190403
  Receipt Date: 20190403
  Transmission Date: 20190711
  Serious: Yes (Other)
  Sender: FDA-Public Use
  Company Number: IT-PFIZER INC-2019139181

PATIENT
  Age: 40 Year
  Sex: Male

DRUGS (1)
  1. XANAX [Suspect]
     Active Substance: ALPRAZOLAM
     Indication: ANXIETY
     Dosage: 20 ML, SINGLE
     Route: 048
     Dates: start: 20181101, end: 20181101

REACTIONS (4)
  - Toxicity to various agents [Unknown]
  - Mental status changes [Unknown]
  - Overdose [Unknown]
  - Delusion [Unknown]

NARRATIVE: CASE EVENT DATE: 20181101
